FAERS Safety Report 18856952 (Version 1)
Quarter: 2021Q1

REPORT INFORMATION
  Report Type: Spontaneous
  Country: US (occurrence: US)
  Receive Date: 20210208
  Receipt Date: 20210208
  Transmission Date: 20210420
  Serious: Yes (Hospitalization)
  Sender: FDA-Public Use
  Company Number: US-ACADIA PHARMACEUTICALS INC.-ACA-2021-PIM-000440

PATIENT
  Age: 69 Year
  Sex: Female

DRUGS (5)
  1. AMANTADINE. [Concomitant]
     Active Substance: AMANTADINE HYDROCHLORIDE
  2. ROTIGOTINE [Concomitant]
     Active Substance: ROTIGOTINE
  3. LEVODOPA [Concomitant]
     Active Substance: LEVODOPA
     Dosage: UNK
  4. NUPLAZID [Suspect]
     Active Substance: PIMAVANSERIN TARTRATE
     Indication: PARKINSON^S DISEASE PSYCHOSIS
     Dosage: 34 MILLIGRAM, QD
     Route: 065
  5. LEVODOPA [Concomitant]
     Active Substance: LEVODOPA
     Dosage: DOSE REDUCED

REACTIONS (2)
  - Parkinson^s disease psychosis [Unknown]
  - Therapeutic response decreased [Unknown]
